FAERS Safety Report 18924682 (Version 1)
Quarter: 2021Q1

REPORT INFORMATION
  Report Type: Spontaneous
  Country: JP (occurrence: JP)
  Receive Date: 20210222
  Receipt Date: 20210222
  Transmission Date: 20210420
  Serious: Yes (Other)
  Sender: FDA-Public Use
  Company Number: JP-PFIZER INC-2021156466

PATIENT

DRUGS (1)
  1. BOSULIF [Suspect]
     Active Substance: BOSUTINIB MONOHYDRATE
     Dosage: UNK
     Route: 048

REACTIONS (5)
  - Ascites [Unknown]
  - Peripheral swelling [Unknown]
  - Dermatitis [Unknown]
  - Skin discolouration [Unknown]
  - Skin exfoliation [Unknown]
